FAERS Safety Report 7969468-8 (Version None)
Quarter: 2011Q4

REPORT INFORMATION
  Report Type: 
  Country: None (occurrence: None)
  Receive Date: 20111212
  Receipt Date: 20111202
  Transmission Date: 20120403
  Serious: Yes (Hospitalization, Other)
  Sender: FDA-Public Use
  Company Number: US-BIOGENIDEC-182084

PATIENT
  Age: 37 Year
  Sex: Female
  Weight: 56 kg

DRUGS (2)
  1. AVONEX [Suspect]
     Indication: MULTIPLE SCLEROSIS
     Route: 030
     Dates: start: 19951001, end: 20030101
  2. AVONEX [Suspect]
     Route: 030
     Dates: start: 20030101

REACTIONS (13)
  - ROAD TRAFFIC ACCIDENT [None]
  - DRUG HYPERSENSITIVITY [None]
  - FALL [None]
  - FATIGUE [None]
  - RIB FRACTURE [None]
  - DEEP VEIN THROMBOSIS [None]
  - SYSTEMIC LUPUS ERYTHEMATOSUS [None]
  - FRACTURED COCCYX [None]
  - LACERATION [None]
  - COAGULATION TIME PROLONGED [None]
  - WEIGHT DECREASED [None]
  - ARTHRALGIA [None]
  - CLAVICLE FRACTURE [None]
